FAERS Safety Report 8203678-X (Version None)
Quarter: 2012Q1

REPORT INFORMATION
  Report Type: 
  Country: None (occurrence: None)
  Receive Date: 20120308
  Receipt Date: 20120227
  Transmission Date: 20120608
  Serious: Yes (Hospitalization, Other)
  Sender: FDA-Public Use
  Company Number: AUR-APL-2012-01217

PATIENT
  Age: 67 Year
  Sex: Female
  Weight: 78 kg

DRUGS (8)
  1. TIKOSYN [Suspect]
     Indication: DIABETES MELLITUS
     Dosage: 500 MCG (250 MCG, 2 IN 1 D, ORAL
     Route: 048
     Dates: start: 20120123
  2. MULTIVITAMIN [Concomitant]
  3. ICAPS (ICAPS) [Concomitant]
  4. PROTONIX [Concomitant]
  5. METFORMIN HCL [Suspect]
     Dosage: 2000 MG (1000 MG, 2 IN 1 D), ORAL
     Route: 048
  6. MAGNESIUM (MAGNESIUM) [Concomitant]
  7. METOPROLOL TARTRATE [Concomitant]
  8. POTASSIUM CHLORIDE [Concomitant]

REACTIONS (4)
  - DIVERTICULITIS [None]
  - BLOOD GLUCOSE DECREASED [None]
  - HEART RATE IRREGULAR [None]
  - BLOOD PRESSURE DECREASED [None]
